FAERS Safety Report 7527680-6 (Version None)
Quarter: 2011Q2

REPORT INFORMATION
  Report Type: 
  Country: None (occurrence: None)
  Receive Date: 20110527
  Receipt Date: 20110517
  Transmission Date: 20111010
  Serious: Yes (Hospitalization)
  Sender: FDA-Public Use
  Company Number: 1000021133

PATIENT
  Age: 68 Year
  Sex: Female

DRUGS (2)
  1. ROFLUMILAST (ROFLUMILAST) (TABLET) [Suspect]
     Indication: CHRONIC OBSTRUCTIVE PULMONARY DISEASE
     Dosage: 500 MCG (500 MCG, 1 IN 1 D)
     Dates: start: 20110401
  2. OXYCODONE HCL [Suspect]

REACTIONS (2)
  - NAUSEA [None]
  - VERTIGO [None]
